FAERS Safety Report 7215924-X (Version None)
Quarter: 2011Q1

REPORT INFORMATION
  Report Type: 
  Country: None (occurrence: None)
  Receive Date: 20110104
  Receipt Date: 20110104
  Transmission Date: 20110831
  Serious: Yes (Other)
  Sender: FDA-Public Use
  Company Number: None

PATIENT
  Age: 45 Year
  Sex: Female
  Weight: 63.5036 kg

DRUGS (2)
  1. CEFTRIAXONE [Suspect]
     Indication: URINARY TRACT INFECTION
     Dosage: IV DRIP
     Route: 041
     Dates: start: 20101228, end: 20101228
  2. CEFTRIAXONE [Suspect]
     Indication: KIDNEY INFECTION
     Dosage: IV DRIP
     Route: 041
     Dates: start: 20101228, end: 20101228

REACTIONS (1)
  - DRUG HYPERSENSITIVITY [None]
